FAERS Safety Report 23395605 (Version 1)
Quarter: 2024Q1

REPORT INFORMATION
  Report Type: Spontaneous
  Country: CA (occurrence: CA)
  Receive Date: 20240112
  Receipt Date: 20240112
  Transmission Date: 20240410
  Serious: Yes (Other)
  Sender: FDA-Public Use
  Company Number: CA-BAXTER-2024BAX010565

PATIENT
  Sex: Female

DRUGS (1)
  1. BUPIVACAINE [Suspect]
     Active Substance: BUPIVACAINE
     Indication: Caesarean section
     Dosage: (DOSAGE FORM: SOLUTION BLOCK/INFILTRATION) AT AN UNSPECIFIED DOSE AND FREQUENCY
     Route: 008

REACTIONS (1)
  - Drug ineffective [Unknown]
